FAERS Safety Report 7364458-0 (Version None)
Quarter: 2011Q1

REPORT INFORMATION
  Report Type: 
  Country: None (occurrence: None)
  Receive Date: 20110321
  Receipt Date: 20110316
  Transmission Date: 20110831
  Serious: Yes (Hospitalization, Other)
  Sender: FDA-Public Use
  Company Number: US-PFIZER INC-2009151501

PATIENT
  Sex: Female
  Weight: 68.9 kg

DRUGS (12)
  1. DILANTIN [Suspect]
     Indication: PARTIAL SEIZURES
     Dosage: 100 MG, 4X/DAY
     Dates: start: 20081216
  2. SEROQUEL [Concomitant]
     Indication: BIPOLAR DISORDER
     Dosage: 300 MG, 1X/DAY
     Route: 048
  3. LEXAPRO [Concomitant]
     Indication: DEPRESSION
     Dosage: UNK
  4. ZYRTEC [Concomitant]
     Dosage: 10 MG, UNK
  5. LYRICA [Suspect]
     Indication: FIBROMYALGIA
     Dosage: 75 MG, 2X/DAY
     Route: 048
     Dates: start: 20070101
  6. HYDROCODONE [Concomitant]
     Dosage: 500 MG, 6X/DAY
  7. KAPIDEX [Concomitant]
     Indication: GASTRIC INFECTION
     Dosage: 60 MG, UNK
  8. NEURONTIN [Suspect]
     Dosage: UNK
  9. ZANAFLEX [Concomitant]
     Indication: MUSCLE RELAXANT THERAPY
     Dosage: UNK
     Route: 048
  10. NASONEX [Concomitant]
     Dosage: UNK
     Route: 045
  11. PRAVASTATIN [Concomitant]
     Indication: BLOOD CHOLESTEROL INCREASED
     Dosage: UNK
  12. IMITREX [Concomitant]
     Indication: MIGRAINE
     Dosage: 100 MG, AS NEEDED
     Route: 048

REACTIONS (18)
  - CONVULSION [None]
  - VOLUME BLOOD DECREASED [None]
  - DRUG DOSE OMISSION [None]
  - ISCHAEMIC STROKE [None]
  - TOOTH INFECTION [None]
  - MALAISE [None]
  - RENAL FAILURE [None]
  - ORAL CANDIDIASIS [None]
  - MIGRAINE [None]
  - GASTRITIS [None]
  - PARTIAL SEIZURES [None]
  - DEPRESSION [None]
  - HEART RATE DECREASED [None]
  - OSTEOMYELITIS [None]
  - RASH PAPULAR [None]
  - FATIGUE [None]
  - ORAL DISCOMFORT [None]
  - VOMITING [None]
